FAERS Safety Report 18328479 (Version 4)
Quarter: 2020Q4

REPORT INFORMATION
  Report Type: Spontaneous
  Country: SI (occurrence: SI)
  Receive Date: 20200930
  Receipt Date: 20201201
  Transmission Date: 20210113
  Serious: Yes (Death, Other)
  Sender: FDA-Public Use
  Company Number: SI-ROCHE-2180412

PATIENT
  Age: 37 Year
  Sex: Male

DRUGS (7)
  1. ALECENSA [Suspect]
     Active Substance: ALECTINIB HYDROCHLORIDE
     Indication: NON-SMALL CELL LUNG CANCER
     Route: 048
     Dates: start: 20180214, end: 20190418
  2. VALPROIC ACID. [Concomitant]
     Active Substance: VALPROIC ACID
     Indication: EPILEPSY
  3. BRIGATINIB [Suspect]
     Active Substance: BRIGATINIB
     Indication: NON-SMALL CELL LUNG CANCER
     Dosage: FOURTH LINE
     Route: 065
     Dates: start: 201909
  4. DEPAKINE CHRONO [Concomitant]
     Active Substance: VALPROATE SODIUM
     Indication: EPILEPSY
  5. BRIGATINIB [Suspect]
     Active Substance: BRIGATINIB
     Dosage: FOURTH LINE
     Route: 065
  6. CERITINIB [Suspect]
     Active Substance: CERITINIB
     Indication: NON-SMALL CELL LUNG CANCER
     Dosage: SECOND LINE
     Route: 065
     Dates: start: 201904
  7. LORLATINIB [Suspect]
     Active Substance: LORLATINIB
     Indication: NON-SMALL CELL LUNG CANCER
     Dosage: THIRD LINE
     Route: 065
     Dates: start: 201907

REACTIONS (2)
  - Hyperbilirubinaemia [Recovered/Resolved]
  - Death [Fatal]

NARRATIVE: CASE EVENT DATE: 202010
